FAERS Safety Report 24278852 (Version 1)
Quarter: 2024Q3

REPORT INFORMATION
  Report Type: Spontaneous
  Country: US (occurrence: US)
  Receive Date: 20240903
  Receipt Date: 20240903
  Transmission Date: 20241016
  Serious: No
  Sender: BIOMARIN
  Company Number: US-SA-2024SA250014

PATIENT

DRUGS (2)
  1. LARONIDASE [Suspect]
     Active Substance: LARONIDASE
     Indication: Mucopolysaccharidosis I
     Dosage: (DILUTED IN NORMAL SALINE WITH 0.1 PERCENT HUMAN SERUM ALBUMIN) ONCE WEEKLY OVER A THREE-HOUR PERIOD
     Route: 042
  2. DIPHENHYDRAMINE [Concomitant]
     Active Substance: DIPHENHYDRAMINE
     Indication: Premedication
     Dosage: 0.5 TO 1.25 MG PER KILOGRAM OF BODY WEIGHT

REACTIONS (4)
  - Abnormal behaviour [Unknown]
  - Swelling face [Recovered/Resolved]
  - Pyrexia [Unknown]
  - Chills [Unknown]
